FAERS Safety Report 24062005 (Version 5)
Quarter: 2024Q3

REPORT INFORMATION
  Report Type: Spontaneous
  Country: BE (occurrence: BE)
  Receive Date: 20240708
  Receipt Date: 20240919
  Transmission Date: 20241017
  Serious: Yes (Other)
  Sender: GLAXOSMITHKLINE
  Company Number: None

PATIENT

DRUGS (36)
  1. WELLBUTRIN [Suspect]
     Active Substance: BUPROPION HYDROCHLORIDE
     Indication: Depression
     Dosage: 150 MG, QD
     Route: 065
     Dates: start: 20210718
  2. REPLAGAL [Suspect]
     Active Substance: AGALSIDASE ALFA
     Indication: Fabry^s disease
     Dosage: 10.5 MG, Q2W (10.5 MILLIGRAM, Q2WEEKS)
     Route: 042
  3. REPLAGAL [Suspect]
     Active Substance: AGALSIDASE ALFA
     Dosage: 10.5 MG, Q2W (10.5 MILLIGRAM, Q2WEEKS)
     Route: 042
  4. REPLAGAL [Suspect]
     Active Substance: AGALSIDASE ALFA
     Dosage: 10.5 MG, Q2W (10.5 MILLIGRAM, Q2WEEKS)
     Route: 042
  5. REPLAGAL [Suspect]
     Active Substance: AGALSIDASE ALFA
     Dosage: 10.5 MG, Q2W (10.5 MILLIGRAM, Q2WEEKS)
     Route: 042
     Dates: start: 20201105
  6. REPLAGAL [Suspect]
     Active Substance: AGALSIDASE ALFA
     Dosage: 10.5 MG, Q2W (10.5 MILLIGRAM, Q2WEEKS)
     Route: 042
  7. REPLAGAL [Suspect]
     Active Substance: AGALSIDASE ALFA
     Dosage: 10.5 G, Q2W (10.5 GRAM, Q2WEEKS)
     Route: 042
  8. REPLAGAL [Suspect]
     Active Substance: AGALSIDASE ALFA
     Dosage: 10.5 MG, Q2W (10.5 MILLIGRAM, Q2WEEKS)
     Route: 042
     Dates: start: 2012
  9. REPLAGAL [Suspect]
     Active Substance: AGALSIDASE ALFA
     Dosage: 10.5 MG, Q2W (10.5 MILLIGRAM, Q2WEEKS)
     Route: 042
  10. REPLAGAL [Suspect]
     Active Substance: AGALSIDASE ALFA
     Dosage: 10.5 MG, Q2W (10.5 MILLIGRAM, Q2WEEKS)
     Route: 042
  11. REPLAGAL [Suspect]
     Active Substance: AGALSIDASE ALFA
     Dosage: 10.5 G, Q2W (10.5 GRAM, Q2WEEKS)
     Route: 042
  12. REPLAGAL [Suspect]
     Active Substance: AGALSIDASE ALFA
     Dosage: 10.5 MG, Q2W (10.5 MILLIGRAM, Q2WEEKS)
     Route: 042
     Dates: start: 20220809
  13. REPLAGAL [Suspect]
     Active Substance: AGALSIDASE ALFA
     Dosage: 3.5 G, Q2W (3.5 GRAM, Q2WEEKS)
     Route: 042
     Dates: start: 20240813
  14. REPLAGAL [Suspect]
     Active Substance: AGALSIDASE ALFA
     Dosage: 10.5 MG, Q2W (10.5 MILLIGRAM, Q2WEEKS)
     Route: 042
  15. REPLAGAL [Suspect]
     Active Substance: AGALSIDASE ALFA
     Dosage: 1 DF, Q2W (1 DOSAGE FORM, Q2WEEKS)
     Route: 042
  16. REPLAGAL [Suspect]
     Active Substance: AGALSIDASE ALFA
     Dosage: 10.5 G, Q2W (10.5 GRAM, Q2WEEKS)
     Route: 042
  17. REPLAGAL [Suspect]
     Active Substance: AGALSIDASE ALFA
     Dosage: UNK
     Route: 065
     Dates: start: 20220823
  18. REPLAGAL [Suspect]
     Active Substance: AGALSIDASE ALFA
     Dosage: 10.5 MG, Q2W (10.5 MILLIGRAM, Q2WEEKS)
     Route: 042
     Dates: start: 20230919
  19. REPLAGAL [Suspect]
     Active Substance: AGALSIDASE ALFA
     Dosage: 3.5 G, Q2W (3.5 GRAM, Q2WEEKS)
     Route: 042
     Dates: start: 20240709
  20. REPLAGAL [Suspect]
     Active Substance: AGALSIDASE ALFA
     Dosage: 1 DF, Q2W (1 DOSAGE FORM, Q2WEEKS)
     Route: 042
     Dates: start: 20201130
  21. REPLAGAL [Suspect]
     Active Substance: AGALSIDASE ALFA
     Dosage: 10.5 G, Q2W (10.5 GRAM, Q2WEEKS)
     Route: 042
     Dates: start: 20240319
  22. REPLAGAL [Suspect]
     Active Substance: AGALSIDASE ALFA
     Dosage: 10.5 MG, Q2W (10.5 MILLIGRAM, Q2WEEKS)
     Route: 042
  23. REPLAGAL [Suspect]
     Active Substance: AGALSIDASE ALFA
     Dosage: 10.5 MG, Q2W (10.5 MILLIGRAM, Q2WEEKS)
     Route: 042
  24. REPLAGAL [Suspect]
     Active Substance: AGALSIDASE ALFA
     Dosage: 3.5 G, Q2W (3.5 GRAM, Q2WEEKS)
     Route: 042
     Dates: start: 20201201
  25. REPLAGAL [Suspect]
     Active Substance: AGALSIDASE ALFA
     Dosage: 10.5 G, Q2W (10.5 GRAM, Q2WEEKS)
     Route: 042
  26. REPLAGAL [Suspect]
     Active Substance: AGALSIDASE ALFA
     Dosage: UNK UNK, Q2W (Q2WEEKS)
     Route: 042
  27. REPLAGAL [Suspect]
     Active Substance: AGALSIDASE ALFA
     Dosage: 10.5 MG, Q2W (10.5 MILLIGRAM, Q2WEEKS)
     Route: 042
  28. REPLAGAL [Suspect]
     Active Substance: AGALSIDASE ALFA
     Dosage: 10.5 MG, Q2W (10.5 MILLIGRAM, Q2WEEKS)
     Route: 042
     Dates: start: 20230919
  29. DAFALGAN [Concomitant]
     Active Substance: ACETAMINOPHEN
     Indication: Product used for unknown indication
     Dosage: 1 G
     Route: 065
  30. LYRICA [Concomitant]
     Active Substance: PREGABALIN
     Indication: Product used for unknown indication
     Dosage: 80 MG, QD
     Route: 065
  31. CLARITHROMYCIN [Concomitant]
     Active Substance: CLARITHROMYCIN
     Indication: Product used for unknown indication
     Dosage: 500 MG, QD (250 MG BID)
     Route: 065
  32. PRAZEPAM [Concomitant]
     Active Substance: PRAZEPAM
     Indication: Product used for unknown indication
     Dosage: 10 MG, QD
     Route: 065
  33. PRAZEPAM [Concomitant]
     Active Substance: PRAZEPAM
     Dosage: 30 MG, QD (15 MILLIGRAM, BID)
     Route: 065
  34. PRAZEPAM [Concomitant]
     Active Substance: PRAZEPAM
     Dosage: 20 MG, QD (10 GRAM, BID)
     Route: 065
  35. ASPIRIN [Concomitant]
     Active Substance: ASPIRIN
     Indication: Product used for unknown indication
     Dosage: 80 MG, QD
     Route: 065
  36. SERETIDE [Concomitant]
     Active Substance: FLUTICASONE PROPIONATE\SALMETEROL XINAFOATE
     Indication: Product used for unknown indication
     Dosage: UNK
     Route: 065

REACTIONS (46)
  - Deafness [Not Recovered/Not Resolved]
  - Retinal vascular disorder [Recovering/Resolving]
  - Suicidal ideation [Unknown]
  - Pertussis [Unknown]
  - Intentional self-injury [Recovered/Resolved]
  - Visual impairment [Not Recovered/Not Resolved]
  - Pyrexia [Not Recovered/Not Resolved]
  - Thirst [Not Recovered/Not Resolved]
  - Blood pressure decreased [Recovered/Resolved]
  - Dizziness [Not Recovered/Not Resolved]
  - Blood urine present [Recovering/Resolving]
  - Noninfective gingivitis [Recovered/Resolved]
  - Headache [Recovered/Resolved]
  - Renal pain [Recovering/Resolving]
  - Hyperhidrosis [Not Recovered/Not Resolved]
  - Drug hypersensitivity [Recovering/Resolving]
  - Pain in extremity [Not Recovered/Not Resolved]
  - Feeling of body temperature change [Recovering/Resolving]
  - Anxiety [Unknown]
  - Diarrhoea [Recovering/Resolving]
  - Vomiting [Unknown]
  - Gingival swelling [Unknown]
  - Dyspnoea [Recovering/Resolving]
  - Erythema [Recovering/Resolving]
  - Illness [Not Recovered/Not Resolved]
  - Discomfort [Recovering/Resolving]
  - Pollakiuria [Not Recovered/Not Resolved]
  - Rash [Recovered/Resolved]
  - Depression [Unknown]
  - Malaise [Recovering/Resolving]
  - Cough [Recovered/Resolved]
  - Hyperhidrosis [Recovered/Resolved]
  - Fatigue [Recovering/Resolving]
  - Feeling hot [Recovered/Resolved]
  - Eye pain [Not Recovered/Not Resolved]
  - Photosensitivity reaction [Recovering/Resolving]
  - Heat stroke [Recovering/Resolving]
  - Rhinorrhoea [Recovering/Resolving]
  - Weight decreased [Recovering/Resolving]
  - Memory impairment [Unknown]
  - Drug intolerance [Unknown]
  - Panic attack [Recovered/Resolved]
  - Oral herpes [Recovering/Resolving]
  - Gingivitis [Unknown]
  - Drug ineffective [Unknown]
  - Inappropriate schedule of product administration [Recovering/Resolving]

NARRATIVE: CASE EVENT DATE: 20200303
